FAERS Safety Report 9097294 (Version 8)
Quarter: 2019Q4

REPORT INFORMATION
  Report Type: Report from Study
  Country: ES (occurrence: ES)
  Receive Date: 20130212
  Receipt Date: 20191119
  Transmission Date: 20200122
  Serious: Yes (Hospitalization)
  Sender: FDA-Public Use
  Company Number: ES-ROCHE-1187272

PATIENT
  Age: 76 Year
  Sex: Female

DRUGS (31)
  1. PERTUZUMAB. [Suspect]
     Active Substance: PERTUZUMAB
     Dosage: MAINTENANCE DOSE
     Route: 042
  2. TRASTUZUMAB. [Suspect]
     Active Substance: TRASTUZUMAB
     Dosage: MAINTENANCE DOSE?DATE OF LAST DOSE PRIOR TO EVENT; 22/JAN/2013
     Route: 042
  3. CAPENON [Concomitant]
     Active Substance: AMLODIPINE BESYLATE\OLMESARTAN MEDOXOMIL
     Route: 065
     Dates: start: 200801
  4. AMOXICILINA + CLAVULANICO [Concomitant]
     Active Substance: AMOXICILLIN\CLAVULANIC ACID
     Route: 065
     Dates: start: 20140822, end: 20140829
  5. FORTASEC [LOPERAMIDE HYDROCHLORIDE] [Concomitant]
  6. LOPERAMIDA [LOPERAMIDE] [Concomitant]
  7. ACETYLSALICYLIC ACID [Concomitant]
     Active Substance: ASPIRIN
  8. PERTUZUMAB. [Suspect]
     Active Substance: PERTUZUMAB
     Indication: HER-2 POSITIVE BREAST CANCER
     Dosage: LOADING DOSE
     Route: 042
     Dates: start: 20130122
  9. AMIKACINA [AMIKACIN] [Concomitant]
     Active Substance: AMIKACIN
     Route: 065
     Dates: start: 20130131, end: 20130207
  10. EMCONCOR [Concomitant]
     Active Substance: BISOPROLOL FUMARATE
     Route: 065
     Dates: start: 20131106, end: 20151105
  11. OLMESARTAN [Concomitant]
     Active Substance: OLMESARTAN
  12. COLIRCUSI GENTADEXA [Concomitant]
     Active Substance: DEXAMETHASONE SODIUM PHOSPHATE\GENTAMICIN SULFATE\TETRAHYDROZOLINE HYDROCHLORIDE
  13. CEFTAZIDIME. [Concomitant]
     Active Substance: CEFTAZIDIME
     Route: 065
     Dates: start: 20130131, end: 20130207
  14. LOPERAMIDA [LOPERAMIDE] [Concomitant]
     Route: 065
     Dates: start: 201406, end: 20140701
  15. EMCONCOR [Concomitant]
     Active Substance: BISOPROLOL FUMARATE
  16. BENZOCAINE;EPHEDRINE [Concomitant]
  17. LEVOFLOXACINO [LEVOFLOXACIN] [Concomitant]
     Active Substance: LEVOFLOXACIN
  18. IBUPROFENO [Concomitant]
     Active Substance: IBUPROFEN
     Route: 065
     Dates: start: 20140822, end: 20140827
  19. METAMIZOL [Concomitant]
     Active Substance: METAMIZOLE SODIUM
  20. LETROZOL [Concomitant]
     Active Substance: LETROZOLE
  21. TRASTUZUMAB. [Suspect]
     Active Substance: TRASTUZUMAB
     Indication: HER-2 POSITIVE BREAST CANCER
     Dosage: 8MG/KG DOSE AS PER PROTOCOL
     Route: 042
     Dates: start: 20130122
  22. DOCETAXEL. [Suspect]
     Active Substance: DOCETAXEL
     Indication: HER-2 POSITIVE BREAST CANCER
     Dosage: MOST RECENT DOSE PRIOR TO SAE: 22/JAN/2013. ON 14/FEB/2013 DOSE WAS REDUCED DUE TO SAE.
     Route: 042
     Dates: start: 20130122
  23. DOCETAXEL. [Suspect]
     Active Substance: DOCETAXEL
     Dosage: ON 14/FEB/2013 DOSE WAS REDUCED DUE TO SAE.
     Route: 042
     Dates: start: 20130214
  24. SIMVASTATIN. [Concomitant]
     Active Substance: SIMVASTATIN
     Route: 065
     Dates: start: 200801
  25. ADIRO [Concomitant]
     Active Substance: ASPIRIN
     Route: 065
     Dates: start: 20130702, end: 20130917
  26. FERROUS SULFATE. [Concomitant]
     Active Substance: FERROUS SULFATE
  27. SALBUTAMOL [Concomitant]
     Active Substance: ALBUTEROL
  28. AMOXICILLIN;CLAVULANATE POTASSIUM [Concomitant]
     Active Substance: AMOXICILLIN\CLAVULANATE POTASSIUM
  29. TIORFAN [Concomitant]
     Active Substance: RACECADOTRIL
     Route: 065
     Dates: start: 20130126, end: 20130129
  30. FORTECORTIN [DEXAMETHASONE] [Concomitant]
     Active Substance: DEXAMETHASONE
     Route: 065
     Dates: start: 20131226, end: 20140116
  31. NEUPOGEN [Concomitant]
     Active Substance: FILGRASTIM
     Route: 065
     Dates: start: 20130411, end: 20130520

REACTIONS (1)
  - Colitis [Recovered/Resolved]

NARRATIVE: CASE EVENT DATE: 20130129
